FAERS Safety Report 10707575 (Version 1)
Quarter: 2015Q1

REPORT INFORMATION
  Report Type: Spontaneous
  Country: US (occurrence: US)
  Receive Date: 20150113
  Receipt Date: 20150113
  Transmission Date: 20150721
  Serious: Yes (Death, Hospitalization, Other)
  Sender: FDA-Public Use
  Company Number: US-009507513-1501USA002531

PATIENT
  Age: 57 Year

DRUGS (1)
  1. INTEGRILIN [Suspect]
     Active Substance: EPTIFIBATIDE
     Indication: PRODUCT USED FOR UNKNOWN INDICATION
     Dosage: UNK
     Route: 065
     Dates: start: 20150102, end: 20150104

REACTIONS (4)
  - Cardiac disorder [Fatal]
  - Haemoptysis [Fatal]
  - Subdural haemorrhage [Fatal]
  - Death [Fatal]

NARRATIVE: CASE EVENT DATE: 201501
